FAERS Safety Report 9448139 (Version 1)
Quarter: 2013Q3

REPORT INFORMATION
  Report Type: Spontaneous
  Country: JP (occurrence: JP)
  Receive Date: 20130808
  Receipt Date: 20130808
  Transmission Date: 20140515
  Serious: Yes (Death)
  Sender: FDA-Public Use
  Company Number: JP-NOVOPROD-384580

PATIENT
  Age: 32 Year
  Sex: Female
  Weight: 66 kg

DRUGS (5)
  1. NOVORAPID CHU [Suspect]
     Indication: TYPE 1 DIABETES MELLITUS
     Dosage: UNK
     Route: 058
  2. NOVORAPID CHU [Suspect]
     Dosage: UNK
     Route: 058
     Dates: start: 201302
  3. WYPAX [Suspect]
     Indication: ANXIETY
     Dosage: 1 MG, QD
     Route: 048
  4. ZOLOFT [Suspect]
     Indication: ANXIETY
     Dosage: 100 MG, QD
     Route: 048
  5. LANTUS [Concomitant]

REACTIONS (1)
  - Cardiac failure congestive [Fatal]
